FAERS Safety Report 12108870 (Version 1)
Quarter: 2016Q1

REPORT INFORMATION
  Report Type: Spontaneous
  Country: US (occurrence: None)
  Receive Date: 20160222
  Receipt Date: 20160222
  Transmission Date: 20160526
  Serious: No
  Sender: FDA-Public Use
  Company Number: None

PATIENT
  Age: 32 Year
  Sex: Male
  Weight: 86.64 kg

DRUGS (5)
  1. FISH OIL [Concomitant]
     Active Substance: FISH OIL
  2. GADAVIST [Suspect]
     Active Substance: GADOBUTROL
     Indication: NUCLEAR MAGNETIC RESONANCE IMAGING
     Dosage: 9 CC ONE TIME INTO A VEIN
     Route: 042
     Dates: start: 20151106, end: 20151106
  3. CLARITIN [Concomitant]
     Active Substance: LORATADINE
  4. ALLERGY SHOTS [Concomitant]
     Active Substance: UNSPECIFIED INGREDIENT
  5. MULTIVITAMIN [Concomitant]
     Active Substance: VITAMINS

REACTIONS (13)
  - Arthralgia [None]
  - Costochondritis [None]
  - Injection site hypoaesthesia [None]
  - Joint crepitation [None]
  - Muscle spasms [None]
  - Tension headache [None]
  - Myalgia [None]
  - Paraesthesia [None]
  - Pain in extremity [None]
  - Muscle contractions involuntary [None]
  - Bone pain [None]
  - Burning sensation [None]
  - Pain [None]

NARRATIVE: CASE EVENT DATE: 20151106
